FAERS Safety Report 9341432 (Version 1)
Quarter: 2013Q2

REPORT INFORMATION
  Report Type: Spontaneous
  Country: US (occurrence: None)
  Receive Date: 20130610
  Receipt Date: 20130610
  Transmission Date: 20140414
  Serious: Yes (Hospitalization, Other)
  Sender: FDA-Public Use
  Company Number: None

PATIENT
  Age: 72 Year
  Sex: Female
  Weight: 58.51 kg

DRUGS (3)
  1. SOTALOL HCL [Suspect]
     Indication: ARRHYTHMIA
     Dosage: BY MOUTH
     Dates: start: 201001
  2. SOTALOL HCL [Suspect]
     Indication: VENTRICULAR TACHYCARDIA
     Dosage: BY MOUTH
     Dates: start: 201001
  3. VERAPAMIL HCL [Suspect]
     Dosage: BY MOUTH
     Dates: start: 201001

REACTIONS (12)
  - Headache [None]
  - Dizziness [None]
  - Heart rate decreased [None]
  - Chest pain [None]
  - Rash [None]
  - Neck pain [None]
  - Cough [None]
  - Lymph node pain [None]
  - Dyspnoea [None]
  - Lymphadenopathy [None]
  - Hypoaesthesia [None]
  - Blood pressure inadequately controlled [None]
